FAERS Safety Report 5258285-8 (Version None)
Quarter: 2007Q1

REPORT INFORMATION
  Report Type: 
  Country: None (occurrence: None)
  Receive Date: 20070308
  Receipt Date: 20070306
  Transmission Date: 20070707
  Serious: Yes (Other)
  Sender: FDA-Public Use
  Company Number: DEWYE338125JAN07

PATIENT
  Sex: Female
  Weight: 95 kg

DRUGS (3)
  1. TYGACIL [Suspect]
     Indication: SEPSIS
     Route: 042
     Dates: start: 20061202, end: 20061210
  2. TYGACIL [Suspect]
     Indication: LUNG INFECTION
  3. TYGACIL [Suspect]
     Indication: ENTEROBACTER INFECTION

REACTIONS (4)
  - BLOOD CREATININE INCREASED [None]
  - BLOOD UREA INCREASED [None]
  - CONVULSION [None]
  - MYOCLONUS [None]
